FAERS Safety Report 8025359-8 (Version None)
Quarter: 2012Q1

REPORT INFORMATION
  Report Type: 
  Country: None (occurrence: None)
  Receive Date: 20120105
  Receipt Date: 20120103
  Transmission Date: 20120608
  Serious: Yes (Hospitalization)
  Sender: FDA-Public Use
  Company Number: FR-GILEAD-2010-0033445

PATIENT
  Sex: Female

DRUGS (5)
  1. TRUVADA [Suspect]
     Indication: HIV INFECTION
     Route: 048
     Dates: start: 20100910, end: 20101007
  2. TRUVADA [Suspect]
     Dosage: UNK
     Dates: start: 20101014
  3. ISENTRESS [Suspect]
     Indication: HIV INFECTION
     Route: 048
     Dates: start: 20101014
  4. VIRAMUNE [Suspect]
     Indication: HIV INFECTION
     Route: 048
     Dates: start: 20100910, end: 20101004
  5. ATRIPLA [Suspect]
     Indication: HIV INFECTION
     Route: 048
     Dates: start: 20101007, end: 20101014

REACTIONS (4)
  - SKIN EXFOLIATION [None]
  - PRURITUS [None]
  - RASH [None]
  - DERMATITIS EXFOLIATIVE [None]
